FAERS Safety Report 19783923 (Version 1)
Quarter: 2021Q3

REPORT INFORMATION
  Report Type: Spontaneous
  Country: US (occurrence: US)
  Receive Date: 20210901
  Receipt Date: 20210901
  Transmission Date: 20211014
  Serious: No
  Sender: FDA-Public Use
  Company Number: None

PATIENT
  Sex: Female

DRUGS (1)
  1. FORTEO [Suspect]
     Active Substance: TERIPARATIDE
     Indication: SENILE OSTEOPOROSIS
     Route: 058
     Dates: start: 202108

REACTIONS (6)
  - Eye pruritus [None]
  - Headache [None]
  - Pain in jaw [None]
  - Neck pain [None]
  - Back pain [None]
  - Tinnitus [None]
